FAERS Safety Report 9822079 (Version 1)
Quarter: 2014Q1

REPORT INFORMATION
  Report Type: Spontaneous
  Country: US (occurrence: US)
  Receive Date: 20140116
  Receipt Date: 20140116
  Transmission Date: 20141002
  Serious: Yes (Other)
  Sender: FDA-Public Use
  Company Number: PHHY2014US003324

PATIENT
  Age: 29 Year
  Sex: Male

DRUGS (8)
  1. AMIKACIN [Suspect]
     Indication: PULMONARY TUBERCULOSIS
     Dosage: 1500 MG PER WEEK
  2. MOXIFLOXACIN [Suspect]
     Indication: PULMONARY TUBERCULOSIS
     Dosage: 400 MG, UNK
  3. LEVOFLOXACIN [Suspect]
     Indication: PULMONARY TUBERCULOSIS
     Dosage: 750 MG, UNK
  4. LINEZOLID [Suspect]
     Indication: PULMONARY TUBERCULOSIS
     Dosage: 600 MG, UNK
  5. LINEZOLID [Suspect]
     Dosage: 300 MG, UNK
  6. CYCLOSERINE [Suspect]
     Indication: PULMONARY TUBERCULOSIS
     Dosage: 500 MG, UNK
  7. ETHIONAMIDE [Suspect]
     Indication: PULMONARY TUBERCULOSIS
     Dosage: 500 MG, UNK
  8. CAPREOMYCIN [Suspect]
     Indication: PULMONARY TUBERCULOSIS
     Dosage: 1300 MG PER WEEK

REACTIONS (3)
  - Thrombocytopenia [Unknown]
  - Deafness [Unknown]
  - Abdominal discomfort [Unknown]
